FAERS Safety Report 18418819 (Version 1)
Quarter: 2020Q4

REPORT INFORMATION
  Report Type: Spontaneous
  Country: PE (occurrence: PE)
  Receive Date: 20201023
  Receipt Date: 20201023
  Transmission Date: 20210114
  Serious: Yes (Hospitalization, Other)
  Sender: FDA-Public Use
  Company Number: PE-ELI_LILLY_AND_COMPANY-PE202009006277

PATIENT
  Sex: Female

DRUGS (3)
  1. HUMULIN N [Suspect]
     Active Substance: INSULIN HUMAN
     Dosage: 12 U, EACH EVENING
     Route: 065
  2. HUMULIN N [Suspect]
     Active Substance: INSULIN HUMAN
     Indication: BLOOD GLUCOSE INCREASED
     Dosage: 18 U, EACH MORNING
     Route: 065
  3. HUMULIN R [Suspect]
     Active Substance: INSULIN HUMAN
     Indication: BLOOD GLUCOSE INCREASED
     Dosage: 6 U, DAILY (AFTERNOON)
     Route: 065

REACTIONS (7)
  - Head injury [Unknown]
  - Headache [Recovered/Resolved]
  - Vision blurred [Unknown]
  - Blood pressure abnormal [Unknown]
  - Mass [Unknown]
  - Visual impairment [Unknown]
  - Xanthopsia [Unknown]

NARRATIVE: CASE EVENT DATE: 201904
